FAERS Safety Report 5069400-3 (Version None)
Quarter: 2006Q3

REPORT INFORMATION
  Report Type: 
  Country: None (occurrence: None)
  Receive Date: 20060714
  Receipt Date: 20060327
  Transmission Date: 20061208
  Serious: No
  Sender: FDA-Public Use
  Company Number: 2006SP001400

PATIENT
  Age: 80 Year
  Sex: Male
  Weight: 69.4003 kg

DRUGS (2)
  1. LUNESTA [Suspect]
     Indication: INSOMNIA
     Dosage: 1 MG;ORAL
     Route: 048
     Dates: start: 20060201
  2. SAW PALMETTO [Concomitant]

REACTIONS (5)
  - DRUG INEFFECTIVE [None]
  - DYSPNOEA [None]
  - FATIGUE [None]
  - MIDDLE INSOMNIA [None]
  - WEIGHT DECREASED [None]
